APPROVED DRUG PRODUCT: LEVOTHYROXINE SODIUM
Active Ingredient: LEVOTHYROXINE SODIUM
Strength: 0.175MG
Dosage Form/Route: TABLET;ORAL
Application: A076752 | Product #009
Applicant: MERCK KGAA
Approved: Jun 16, 2005 | RLD: No | RS: No | Type: DISCN